FAERS Safety Report 7319714-9 (Version None)
Quarter: 2011Q1

REPORT INFORMATION
  Report Type: 
  Country: None (occurrence: None)
  Receive Date: 20110228
  Receipt Date: 20100818
  Transmission Date: 20110831
  Serious: No
  Sender: FDA-Public Use
  Company Number: A0876530A

PATIENT
  Age: 53 Year
  Sex: Male

DRUGS (16)
  1. TRICOR [Concomitant]
  2. ASPIRIN [Concomitant]
  3. DIABETES MEDICATION [Concomitant]
  4. ZEGERID [Concomitant]
  5. VITAMIN D [Concomitant]
  6. HYDROCHLOROTHIAZIDE [Concomitant]
  7. ISOSORBID MONONITRATE [Concomitant]
  8. MULTI-VITAMIN [Concomitant]
  9. FLAX SEED OIL [Concomitant]
  10. CRESTOR [Concomitant]
  11. METFORMIN [Concomitant]
  12. GLIPIZIDE [Concomitant]
  13. MAGNESIUM [Concomitant]
  14. ASCORBIC ACID [Concomitant]
  15. LAMICTAL [Suspect]
     Indication: MOOD SWINGS
     Dosage: 100MG PER DAY
     Route: 048
     Dates: start: 20100601
  16. ACTOS [Concomitant]

REACTIONS (1)
  - DRUG INEFFECTIVE [None]
